FAERS Safety Report 9636662 (Version 1)
Quarter: 2013Q4

REPORT INFORMATION
  Report Type: Spontaneous
  Country: SE (occurrence: SE)
  Receive Date: 20131021
  Receipt Date: 20131021
  Transmission Date: 20140711
  Serious: Yes (Other)
  Sender: FDA-Public Use
  Company Number: SE-ROCHE-1290952

PATIENT
  Age: 70 Year
  Sex: Female

DRUGS (1)
  1. XOLAIR [Suspect]
     Indication: ASTHMA
     Dosage: EVERY 14 DAYS
     Route: 065
     Dates: start: 2008, end: 20130808

REACTIONS (10)
  - Blood pressure decreased [Unknown]
  - Abdominal distension [Unknown]
  - Hypertension [Unknown]
  - Heart rate increased [Unknown]
  - Asthenia [Unknown]
  - Hyperhidrosis [Unknown]
  - Snoring [Not Recovered/Not Resolved]
  - Dysphonia [Unknown]
  - Vital capacity decreased [Unknown]
  - Dyspnoea [Unknown]
